FAERS Safety Report 14056921 (Version 2)
Quarter: 2017Q4

REPORT INFORMATION
  Report Type: Spontaneous
  Country: JP (occurrence: JP)
  Receive Date: 20171006
  Receipt Date: 20171023
  Transmission Date: 20180321
  Serious: Yes (Other)
  Sender: FDA-Public Use
  Company Number: JP-TEVA-812238ROM

PATIENT
  Age: 80 Year
  Sex: Male

DRUGS (3)
  1. BENET [Suspect]
     Active Substance: RISEDRONATE SODIUM
     Indication: METASTASES TO BONE
     Route: 048
     Dates: start: 200911, end: 201209
  2. ZOLEDRONIC ACID [Suspect]
     Active Substance: ZOLEDRONIC ACID
     Indication: METASTASES TO BONE
     Route: 065
     Dates: start: 200907, end: 201209
  3. RANMARK [Suspect]
     Active Substance: DENOSUMAB
     Indication: METASTASES TO BONE
     Route: 065
     Dates: start: 201209

REACTIONS (9)
  - Diarrhoea [Recovering/Resolving]
  - Pain [Recovering/Resolving]
  - Off label use [Unknown]
  - Skin ulcer [Unknown]
  - Osteonecrosis of jaw [Unknown]
  - Rhinorrhoea [Recovering/Resolving]
  - Swelling [Unknown]
  - Infected fistula [Unknown]
  - Erythema [Unknown]
